FAERS Safety Report 12207768 (Version 2)
Quarter: 2016Q1

REPORT INFORMATION
  Report Type: Spontaneous
  Country: CH (occurrence: CH)
  Receive Date: 20160324
  Receipt Date: 20160330
  Transmission Date: 20160526
  Serious: Yes (Other)
  Sender: FDA-Public Use
  Company Number: CH-LPDUSPRD-20160251

PATIENT
  Sex: Female
  Weight: 71 kg

DRUGS (3)
  1. FERINJECT [Suspect]
     Active Substance: FERRIC CARBOXYMALTOSE
     Dosage: 100 MG IN 100 ML NSS IN 15 MIN
     Route: 041
     Dates: start: 20160307, end: 20160307
  2. GYNEFAM [Concomitant]
     Dosage: DOSE NOT PROVIDED
     Route: 065
  3. VITAMIN D [Concomitant]
     Active Substance: CHOLECALCIFEROL
     Dosage: DOSE NOT PROVIDED
     Route: 048

REACTIONS (4)
  - Cough [Unknown]
  - Dyspnoea [Unknown]
  - Exposure during pregnancy [Recovered/Resolved]
  - Product preparation error [Unknown]

NARRATIVE: CASE EVENT DATE: 20160307
